FAERS Safety Report 8105034 (Version 4)
Quarter: 2013Q4

REPORT INFORMATION
  Report Type: Spontaneous
  Country: US (occurrence: US)
  Receive Date: 20110824
  Receipt Date: 20131015
  Transmission Date: 20140711
  Serious: Yes (Hospitalization)
  Sender: FDA-Public Use
  Company Number: US-US-EMD SERONO, INC.-7078090

PATIENT
  Age: 56 Year
  Sex: Male

DRUGS (2)
  1. REBIF [Suspect]
     Indication: MULTIPLE SCLEROSIS
     Route: 058
     Dates: start: 20100506, end: 201008
  2. REBIF [Suspect]
     Route: 058
     Dates: start: 20100908, end: 20111020

REACTIONS (3)
  - Meningitis viral [Unknown]
  - Multiple sclerosis relapse [Recovered/Resolved]
  - Injection site pain [Unknown]
